FAERS Safety Report 14093249 (Version 4)
Quarter: 2018Q1

REPORT INFORMATION
  Report Type: Spontaneous
  Country: FR (occurrence: FR)
  Receive Date: 20171016
  Receipt Date: 20180312
  Transmission Date: 20180508
  Serious: Yes (Life-Threatening, Hospitalization, Other)
  Sender: FDA-Public Use
  Company Number: FR-SA-2017SA199620

PATIENT
  Age: 75 Year
  Sex: Male

DRUGS (2)
  1. RIFAMPICIN [Suspect]
     Active Substance: RIFAMPIN
     Indication: ENDOCARDITIS STAPHYLOCOCCAL
     Route: 065
  2. CEFAZOLIN [Suspect]
     Active Substance: CEFAZOLIN
     Indication: ENDOCARDITIS STAPHYLOCOCCAL
     Route: 042

REACTIONS (11)
  - Gastrointestinal haemorrhage [Recovering/Resolving]
  - Hypovitaminosis [Recovered/Resolved]
  - Melaena [Recovered/Resolved]
  - Hypotension [Recovered/Resolved]
  - Coagulation factor VII level decreased [Recovered/Resolved]
  - Vitamin K decreased [Recovered/Resolved]
  - Prothrombin level decreased [Recovered/Resolved]
  - Haemoglobin decreased [Recovering/Resolving]
  - Coagulation factor X level decreased [Recovered/Resolved]
  - Confusional state [Recovered/Resolved]
  - Hypoprothrombinaemia [Recovered/Resolved]
